FAERS Safety Report 6808680-8 (Version None)
Quarter: 2010Q2

REPORT INFORMATION
  Report Type: 
  Country: None (occurrence: None)
  Receive Date: 20100629
  Receipt Date: 20090909
  Transmission Date: 20101027
  Serious: Yes (Other)
  Sender: FDA-Public Use
  Company Number: US-PFIZER INC-2009248473

PATIENT
  Sex: Female
  Weight: 58.05 kg

DRUGS (6)
  1. TIKOSYN [Suspect]
     Indication: ATRIAL FIBRILLATION
     Dosage: 500 MCG,  2X/DAY
     Route: 048
     Dates: end: 20090401
  2. TIKOSYN [Suspect]
     Dosage: 250 MG, 2X/DAY
     Dates: start: 20090729
  3. WARFARIN [Concomitant]
     Dosage: 5 MG, UNK
  4. LISINOPRIL [Concomitant]
     Indication: HYPERTENSION
     Dosage: 10 MG, UNK
  5. TOPROL-XL [Concomitant]
     Indication: HYPERTENSION
     Dosage: 50 MG, UNK
  6. DILANTIN [Concomitant]
     Indication: CONVULSION
     Dosage: UNK

REACTIONS (2)
  - ATRIAL FIBRILLATION [None]
  - ELECTROCARDIOGRAM QT PROLONGED [None]
